FAERS Safety Report 7576583-X (Version None)
Quarter: 2011Q2

REPORT INFORMATION
  Report Type: 
  Country: None (occurrence: None)
  Receive Date: 20110628
  Receipt Date: 20110619
  Transmission Date: 20111010
  Serious: Yes (Hospitalization, Other)
  Sender: FDA-Public Use
  Company Number: US-BAYER-201028286NA

PATIENT
  Age: 31 Year
  Sex: Female
  Weight: 97.959 kg

DRUGS (10)
  1. YAZ [Suspect]
     Indication: PRODUCT USED FOR UNKNOWN INDICATION
     Dosage: UNK UNK, UNK
     Route: 048
     Dates: start: 20070601, end: 20081001
  2. PHENTERMINE [Concomitant]
  3. VICODIN [Concomitant]
  4. ACETAMINOPHEN AND HYDROCODONE BITARTRATE [Concomitant]
  5. IMITREX [Concomitant]
     Indication: MIGRAINE
     Dosage: UNK
     Dates: start: 20080101
  6. ZOLOFT [Concomitant]
  7. DEPAKOTE [Concomitant]
  8. LORTAB [Concomitant]
  9. DIVALPROEX SODIUM [Concomitant]
     Indication: PAIN
     Dosage: UNK
     Dates: start: 20080101
  10. PROTONIX [Concomitant]

REACTIONS (5)
  - GALLBLADDER DISORDER [None]
  - CHOLECYSTITIS CHRONIC [None]
  - MIGRAINE [None]
  - ABDOMINAL PAIN UPPER [None]
  - ABDOMINAL PAIN [None]
